FAERS Safety Report 10206275 (Version 1)
Quarter: 2014Q2

REPORT INFORMATION
  Report Type: Spontaneous
  Country: US (occurrence: None)
  Receive Date: 20140527
  Receipt Date: 20140527
  Transmission Date: 20141212
  Serious: Yes (Other)
  Sender: FDA-Public Use
  Company Number: None

PATIENT
  Age: 54 Year
  Sex: Female
  Weight: 79.83 kg

DRUGS (1)
  1. VENLAFAXINE HYDROCHLORIDE [Suspect]
     Indication: DEPRESSION
     Dosage: 1 CAPSULE DAILY ONCE DAILY
     Dates: start: 20140505, end: 20140509

REACTIONS (4)
  - Drug ineffective [None]
  - Paraesthesia [None]
  - Dyspnoea exertional [None]
  - Product quality issue [None]
